FAERS Safety Report 10052497 (Version 1)
Quarter: 2014Q2

REPORT INFORMATION
  Report Type: Spontaneous
  Country: US (occurrence: None)
  Receive Date: 20140401
  Receipt Date: 20140401
  Transmission Date: 20141212
  Serious: Yes (Other)
  Sender: FDA-Public Use
  Company Number: None

PATIENT
  Age: 63 Year
  Sex: Female
  Weight: 99.79 kg

DRUGS (11)
  1. INVOKANA [Suspect]
     Indication: TYPE 2 DIABETES MELLITUS
     Dosage: 2 PUFS OR 1 TEASPOON, 1 TABLET, BY MOUTH; PR 500 ML OR 1 G - 100 MG
     Dates: start: 20140303, end: 20140304
  2. LISINOPRIL [Concomitant]
  3. LEVOTHYROXIN [Concomitant]
  4. LISINOPRIL [Concomitant]
  5. ABILIFY [Concomitant]
  6. METFORMIN [Concomitant]
  7. VENLAFAXINE [Concomitant]
  8. ASPIRAN [Concomitant]
  9. FISH OIL [Concomitant]
  10. CINNAMON [Concomitant]
  11. VITAMIN D3 [Concomitant]

REACTIONS (3)
  - Listless [None]
  - Depression [None]
  - Suicidal ideation [None]
